FAERS Safety Report 20059045 (Version 2)
Quarter: 2021Q4

REPORT INFORMATION
  Report Type: Spontaneous
  Country: US (occurrence: US)
  Receive Date: 20211111
  Receipt Date: 20211129
  Transmission Date: 20220303
  Serious: Yes (Other)
  Sender: FDA-Public Use
  Company Number: US-ALXN-A202112114

PATIENT
  Age: 47 Year
  Sex: Female

DRUGS (1)
  1. ULTOMIRIS [Suspect]
     Active Substance: RAVULIZUMAB-CWVZ
     Indication: Atypical haemolytic uraemic syndrome
     Dosage: 2700 MG EVERY 8 WEEKS
     Route: 041
     Dates: start: 20200413

REACTIONS (5)
  - Autoimmune disorder [Unknown]
  - Immunodeficiency [Unknown]
  - Hand-foot-and-mouth disease [Recovered/Resolved]
  - Anaemia [Unknown]
  - Fatigue [Unknown]

NARRATIVE: CASE EVENT DATE: 20210901
